FAERS Safety Report 7118326-X (Version None)
Quarter: 2010Q4

REPORT INFORMATION
  Report Type: 
  Country: None (occurrence: None)
  Receive Date: 20101123
  Receipt Date: 20101110
  Transmission Date: 20110411
  Serious: Yes (Hospitalization)
  Sender: FDA-Public Use
  Company Number: PHHY2010DE76927

PATIENT
  Age: 69 Year
  Sex: Female

DRUGS (1)
  1. AREDIA [Suspect]
     Route: 042

REACTIONS (4)
  - OSTEONECROSIS OF JAW [None]
  - PLASTIC SURGERY [None]
  - SEQUESTRECTOMY [None]
  - TOOTH EXTRACTION [None]
